FAERS Safety Report 11658215 (Version 1)
Quarter: 2015Q4

REPORT INFORMATION
  Report Type: Spontaneous
  Country: CZ (occurrence: CZ)
  Receive Date: 20151025
  Receipt Date: 20151025
  Transmission Date: 20160304
  Serious: Yes (Other)
  Sender: FDA-Public Use
  Company Number: CZ-TEVA-602565ISR

PATIENT
  Age: 45 Year
  Sex: Male

DRUGS (12)
  1. PREDNISONE. [Suspect]
     Active Substance: PREDNISONE
     Dosage: 10-30 MG/DAY
     Route: 065
  2. DEXAMETHASONE. [Suspect]
     Active Substance: DEXAMETHASONE
     Dosage: 40MG ON DAYS 1-4 AND 8-11 OF A 21-DAY CYCLE
     Route: 065
  3. CLODRONIC ACID [Concomitant]
     Active Substance: CLODRONIC ACID
     Dosage: 1500MG IN 28-DAY INTERVALS
     Route: 041
  4. CLADRIBINE. [Concomitant]
     Active Substance: CLADRIBINE
     Dosage: .1 MG/KG DAILY; OVER 7 DAYS
     Route: 041
  5. CLODRONIC ACID [Concomitant]
     Active Substance: CLODRONIC ACID
     Dosage: 900MG IN 14-DAY INTERVALS
     Route: 041
  6. ANAKINRA [Concomitant]
     Active Substance: ANAKINRA
     Dosage: DAILY
     Route: 058
  7. THALIDOMIDE [Concomitant]
     Active Substance: THALIDOMIDE
     Dosage: 100 MILLIGRAM DAILY;
     Route: 065
     Dates: start: 200409
  8. BORTEZOMIB [Concomitant]
     Active Substance: BORTEZOMIB
     Dosage: 1.3 MG/M2 DAY 1, 4, 8, AND 11
     Route: 065
  9. DEXAMETHASONE. [Suspect]
     Active Substance: DEXAMETHASONE
     Dosage: 40MG ON DAYS 1-4, 10-13 AND 20-23 OF A 28-DAY CYCLE
     Route: 048
  10. CYCLOSPORIN A [Suspect]
     Active Substance: CYCLOSPORINE
     Dosage: 5MG/KG (TOTAL 300MG)
     Route: 065
     Dates: start: 200406
  11. INTERFERON ALFA NOS [Suspect]
     Active Substance: INTERFERON ALFA-2A OR INTERFERON ALFA-2B
     Dosage: 3 MU THREE TIMES WEEKLY
     Route: 058
     Dates: start: 1998
  12. PAMIDRONIC ACID [Concomitant]
     Active Substance: PAMIDRONIC ACID
     Dosage: 90 MG IN 28-DAY INTERVALS
     Route: 065

REACTIONS (2)
  - Diabetes mellitus [Unknown]
  - Fungal skin infection [Unknown]
